FAERS Safety Report 7637848 (Version 2)
Quarter: 2013Q2

REPORT INFORMATION
  Report Type: Report from Study
  Country: NL (occurrence: NL)
  Receive Date: 20101022
  Receipt Date: 20130418
  Transmission Date: 20140414
  Serious: Yes (Hospitalization)
  Sender: FDA-Public Use
  Company Number: PHHO2010NL15689

PATIENT
  Age: 71 Year
  Sex: Female
  Weight: 83 kg

DRUGS (4)
  1. AFINITOR [Suspect]
     Indication: POLYCYSTIC LIVER DISEASE
     Dosage: 2.5 MG, UNK
     Route: 048
     Dates: start: 20100716, end: 20101013
  2. SANDOSTATIN LAR [Suspect]
     Indication: POLYCYSTIC LIVER DISEASE
     Dosage: 40 MG, QW4
     Route: 030
     Dates: start: 20100716, end: 20101013
  3. FUROSEMIDE [Suspect]
     Indication: OEDEMA PERIPHERAL
  4. SPIRONOLACTONE [Concomitant]
     Indication: OEDEMA PERIPHERAL

REACTIONS (9)
  - Blood albumin decreased [Recovered/Resolved]
  - Anaemia [Recovered/Resolved]
  - Malaise [Recovered/Resolved]
  - Pyrexia [Recovered/Resolved]
  - Inflammatory marker increased [Recovered/Resolved]
  - C-reactive protein increased [Unknown]
  - Portal hypertension [Not Recovered/Not Resolved]
  - Ascites [Not Recovered/Not Resolved]
  - Abdominal pain [Recovered/Resolved]
